FAERS Safety Report 19422311 (Version 1)
Quarter: 2021Q2

REPORT INFORMATION
  Report Type: Spontaneous
  Country: US (occurrence: US)
  Receive Date: 20210616
  Receipt Date: 20210616
  Transmission Date: 20210717
  Serious: Yes (Hospitalization)
  Sender: FDA-Public Use
  Company Number: None

PATIENT
  Sex: Male
  Weight: 71.6 kg

DRUGS (1)
  1. CISPLATIN. [Suspect]
     Active Substance: CISPLATIN

REACTIONS (4)
  - Sinus tachycardia [None]
  - Hypotension [None]
  - Atrioventricular block second degree [None]
  - Atrioventricular block complete [None]

NARRATIVE: CASE EVENT DATE: 20210610
